FAERS Safety Report 6557222-3 (Version None)
Quarter: 2010Q1

REPORT INFORMATION
  Report Type: 
  Country: None (occurrence: None)
  Receive Date: 20100127
  Receipt Date: 20100127
  Transmission Date: 20100710
  Serious: Yes (Other)
  Sender: FDA-Public Use
  Company Number: None

PATIENT
  Sex: Female

DRUGS (2)
  1. ONDANSETRON ODT 8 MG SANDOZ [Suspect]
     Indication: NAUSEA
     Dosage: ONE 8MG TABLET ONCE PO
     Route: 048
     Dates: start: 20100125, end: 20100125
  2. ONDANSETRON ODT 8 MG SANDOZ [Suspect]
     Indication: VOMITING
     Dosage: ONE 8MG TABLET ONCE PO
     Route: 048
     Dates: start: 20100125, end: 20100125

REACTIONS (4)
  - ANXIETY [None]
  - CRYING [None]
  - FORMICATION [None]
  - SKIN DISORDER [None]
